FAERS Safety Report 8063580-3 (Version None)
Quarter: 2012Q1

REPORT INFORMATION
  Report Type: 
  Country: None (occurrence: None)
  Receive Date: 20120123
  Receipt Date: 20120113
  Transmission Date: 20120608
  Serious: Yes (Other)
  Sender: FDA-Public Use
  Company Number: US-BAYER-2011-041043

PATIENT
  Age: 16 Year
  Sex: Female
  Weight: 58.05 kg

DRUGS (5)
  1. YASMIN [Suspect]
     Indication: MENSTRUAL CYCLE MANAGEMENT
     Dosage: UNK
     Dates: start: 20060201, end: 20080501
  2. YAZ [Suspect]
     Indication: DYSMENORRHOEA
  3. YASMIN [Suspect]
     Indication: DYSMENORRHOEA
  4. CLARITIN [Concomitant]
     Indication: MULTIPLE ALLERGIES
  5. YAZ [Suspect]
     Indication: MENSTRUAL CYCLE MANAGEMENT
     Dosage: UNK
     Dates: start: 20080601, end: 20090901

REACTIONS (6)
  - ABDOMINAL PAIN UPPER [None]
  - NAUSEA [None]
  - BILIARY DYSKINESIA [None]
  - EMOTIONAL DISTRESS [None]
  - ABDOMINAL PAIN [None]
  - ANXIETY [None]
